FAERS Safety Report 8625429-7 (Version None)
Quarter: 2012Q3

REPORT INFORMATION
  Report Type: 
  Country: None (occurrence: None)
  Receive Date: 20120827
  Receipt Date: 20120820
  Transmission Date: 20120928
  Serious: Yes (Hospitalization)
  Sender: FDA-Public Use
  Company Number: PHHY2012KR072121

PATIENT
  Age: 67 Year
  Sex: Female

DRUGS (2)
  1. ACETYLSALICYLIC ACID SRT [Suspect]
     Indication: ANTIPLATELET THERAPY
     Route: 048
  2. PLAVIX [Suspect]
     Indication: ANTIPLATELET THERAPY
     Dosage: 75 MG, UNK
     Route: 048

REACTIONS (6)
  - SUBDURAL HAEMATOMA [None]
  - BACK PAIN [None]
  - HYPOAESTHESIA [None]
  - HEADACHE [None]
  - HYPOKINESIA [None]
  - PAIN IN EXTREMITY [None]
